FAERS Safety Report 4438494-8 (Version None)
Quarter: 2004Q3

REPORT INFORMATION
  Report Type: 
  Country: None (occurrence: None)
  Receive Date: 20040728
  Receipt Date: 20040318
  Transmission Date: 20050211
  Serious: No
  Sender: FDA-Public Use
  Company Number: USA040362440

PATIENT
  Age: 6 Year
  Sex: Male
  Weight: 22 kg

DRUGS (2)
  1. STRATTERA [Suspect]
     Dosage: 25 MG DAY
     Dates: start: 20040313
  2. VITAMIN NOS [Concomitant]

REACTIONS (6)
  - ABDOMINAL PAIN [None]
  - HEADACHE [None]
  - LETHARGY [None]
  - LOOSE STOOLS [None]
  - RETCHING [None]
  - VOMITING [None]
